FAERS Safety Report 5341944-6 (Version None)
Quarter: 2007Q2

REPORT INFORMATION
  Report Type: 
  Country: None (occurrence: None)
  Receive Date: 20070409
  Receipt Date: 20041101
  Transmission Date: 20071010
  Serious: Yes (Death)
  Sender: FDA-Public Use
  Company Number: GXBR2004US00569

PATIENT
  Sex: Male

DRUGS (1)
  1. AMIODARONE HCL [Suspect]

REACTIONS (1)
  - PULMONARY FIBROSIS [None]
